FAERS Safety Report 10097818 (Version 1)
Quarter: 2014Q2

REPORT INFORMATION
  Report Type: Spontaneous
  Country: US (occurrence: US)
  Receive Date: 20140423
  Receipt Date: 20140423
  Transmission Date: 20141212
  Serious: No
  Sender: FDA-Public Use
  Company Number: US-BIOGENIDEC-2014BI035469

PATIENT
  Age: 69 Year
  Sex: Male

DRUGS (6)
  1. TECFIDERA [Suspect]
     Indication: MULTIPLE SCLEROSIS
     Route: 048
     Dates: start: 201310
  2. AMLODIPINE BESYLATE [Concomitant]
  3. PRILOSEC DR [Concomitant]
  4. FLOMAX [Concomitant]
  5. CVS VITAMIN D [Concomitant]
  6. B COMPLEX [Concomitant]

REACTIONS (2)
  - Night sweats [Unknown]
  - Flushing [Not Recovered/Not Resolved]
